FAERS Safety Report 16932577 (Version 1)
Quarter: 2019Q4

REPORT INFORMATION
  Report Type: Spontaneous
  Country: US (occurrence: US)
  Receive Date: 20191017
  Receipt Date: 20191017
  Transmission Date: 20200122
  Serious: Yes (Other)
  Sender: FDA-Public Use
  Company Number: NVSC2019US001131

PATIENT
  Age: 57 Year
  Sex: Female

DRUGS (1)
  1. AZITHROMYCIN ANHYDROUS. [Suspect]
     Active Substance: AZITHROMYCIN ANHYDROUS
     Indication: MYCOBACTERIAL INFECTION
     Route: 065

REACTIONS (11)
  - Renal tubular necrosis [Unknown]
  - Cough [Unknown]
  - Influenza like illness [Unknown]
  - Malaise [Unknown]
  - Pyrexia [Unknown]
  - Urine abnormality [Unknown]
  - Night sweats [Unknown]
  - Polyarthritis [Unknown]
  - Granulomatosis with polyangiitis [Unknown]
  - Dyspnoea [Unknown]
  - Product use in unapproved indication [Unknown]
